FAERS Safety Report 25675770 (Version 2)
Quarter: 2025Q3

REPORT INFORMATION
  Report Type: Spontaneous
  Country: US (occurrence: US)
  Receive Date: 20250813
  Receipt Date: 20250926
  Transmission Date: 20251020
  Serious: No
  Sender: TEVA
  Company Number: US-TEVA-VS-3359592

PATIENT
  Age: 37 Year
  Sex: Male

DRUGS (4)
  1. UZEDY [Suspect]
     Active Substance: RISPERIDONE
     Indication: Autism spectrum disorder
     Dosage: STRENGTH FORM: 125/0.35MG/ML
     Route: 065
     Dates: start: 2025
  2. UZEDY [Suspect]
     Active Substance: RISPERIDONE
     Indication: Schizoaffective disorder
  3. UZEDY [Suspect]
     Active Substance: RISPERIDONE
     Indication: Bipolar disorder
  4. UZEDY [Suspect]
     Active Substance: RISPERIDONE
     Indication: Schizophrenia

REACTIONS (5)
  - Breast discharge [Not Recovered/Not Resolved]
  - Weight increased [Not Recovered/Not Resolved]
  - Product use in unapproved indication [Unknown]
  - Breast pain [Not Recovered/Not Resolved]
  - Therapy naive [Unknown]

NARRATIVE: CASE EVENT DATE: 20250101
